FAERS Safety Report 7001198-1 (Version None)
Quarter: 2010Q3

REPORT INFORMATION
  Report Type: 
  Country: None (occurrence: None)
  Receive Date: 20100920
  Receipt Date: 20090721
  Transmission Date: 20110219
  Serious: Yes (Other)
  Sender: FDA-Public Use
  Company Number: US-ASTRAZENECA-2007UW05080

PATIENT
  Sex: Female

DRUGS (6)
  1. SEROQUEL [Suspect]
     Dosage: 25 MG TO 100 MG
     Route: 048
     Dates: start: 20040922
  2. LORAZEPAM [Concomitant]
     Dates: start: 20040913
  3. BENZTROPINE MESYLATE [Concomitant]
     Dates: start: 20040913
  4. DEPAKOTE [Concomitant]
     Dates: start: 20071005
  5. LEVOTHYROXINE [Concomitant]
     Dates: start: 20071005
  6. ARTANE [Concomitant]
     Dates: start: 20071005

REACTIONS (3)
  - DIABETIC KETOACIDOSIS [None]
  - PANCREATITIS [None]
  - TYPE 1 DIABETES MELLITUS [None]
